FAERS Safety Report 8152610-6 (Version None)
Quarter: 2012Q1

REPORT INFORMATION
  Report Type: 
  Country: None (occurrence: None)
  Receive Date: 20120221
  Receipt Date: 20120216
  Transmission Date: 20120608
  Serious: Yes (Hospitalization, Disabling, Other)
  Sender: FDA-Public Use
  Company Number: PL-BAYER-2012-005784

PATIENT
  Age: 43 Year
  Sex: Female
  Weight: 80 kg

DRUGS (4)
  1. SORAFENIB (RAF KINASE INHIBITOR) [Suspect]
     Indication: BREAST CANCER METASTATIC
     Dosage: 600 MG / DAY
     Route: 048
     Dates: start: 20111118, end: 20120113
  2. CAPECITABINE [Suspect]
     Indication: BREAST CANCER METASTATIC
     Dosage: 1000 MG/M2, BID
     Route: 048
     Dates: start: 20111230, end: 20120113
  3. METOCLOPRAMIDE [Concomitant]
     Indication: NAUSEA
     Dosage: 20 MG DAILY
     Route: 048
  4. PANTOPRAZOLE [Concomitant]
     Indication: STOMATITIS
     Dosage: 40 MG DAILY
     Route: 048
     Dates: start: 20111209

REACTIONS (1)
  - PULMONARY MICROEMBOLI [None]
